FAERS Safety Report 5950343-5 (Version None)
Quarter: 2008Q4

REPORT INFORMATION
  Report Type: 
  Country: None (occurrence: None)
  Receive Date: 20081112
  Receipt Date: 20081104
  Transmission Date: 20090506
  Serious: Yes (Other)
  Sender: FDA-Public Use
  Company Number: PHHY2008DE22487

PATIENT
  Sex: Female
  Weight: 62 kg

DRUGS (3)
  1. EXELON [Suspect]
     Indication: DEMENTIA
     Dosage: 4.6 MG/24 HOURS
     Route: 062
     Dates: start: 20080401
  2. EXELON [Suspect]
     Dosage: 9.5 MG/24 HOUR PATCH
     Route: 062
     Dates: start: 20080701
  3. EXELON [Suspect]
     Dosage: 9.5 MG/ 24 HOUR PATCH
     Route: 062
     Dates: start: 20080904, end: 20080925

REACTIONS (4)
  - APPLICATION SITE PRURITUS [None]
  - APPLICATION SITE URTICARIA [None]
  - ARRHYTHMIA [None]
  - AV DISSOCIATION [None]
